FAERS Safety Report 8142294-5 (Version None)
Quarter: 2012Q1

REPORT INFORMATION
  Report Type: 
  Country: None (occurrence: None)
  Receive Date: 20120216
  Receipt Date: 20120213
  Transmission Date: 20120608
  Serious: Yes (Life-Threatening, Hospitalization, Other)
  Sender: FDA-Public Use
  Company Number: US-ELI_LILLY_AND_COMPANY-US201202003973

PATIENT
  Sex: Male

DRUGS (13)
  1. REMERON [Concomitant]
     Dosage: 15 MG, EACH EVENING
  2. IMDUR [Concomitant]
     Dosage: 30 MG, UNK
  3. HUMALOG [Suspect]
     Indication: DIABETES MELLITUS
     Dosage: 10 U, TID
     Dates: start: 20080101
  4. HUMALOG [Suspect]
     Dosage: 10 U, TID
  5. PROZAC [Suspect]
     Dosage: 40 MG, UNK
     Dates: start: 20110101
  6. LANTUS [Concomitant]
     Dosage: 35 U, BID
  7. CARVEDILOL [Concomitant]
     Dosage: 125 MG, UNK
  8. MUCINEX [Concomitant]
     Dosage: UNK
  9. SULFAMETIZOL [Concomitant]
     Dosage: UNK, BID
  10. ASPIRIN [Concomitant]
     Dosage: UNK
  11. LIPITOR [Concomitant]
     Dosage: UNK
  12. REGLAN [Concomitant]
     Dosage: UNK
  13. TORSEMIDE [Concomitant]
     Dosage: 10 MG, UNK

REACTIONS (12)
  - RESPIRATORY FAILURE [None]
  - PNEUMONIA [None]
  - CARDIAC ARREST [None]
  - DECUBITUS ULCER [None]
  - SKIN DISCOLOURATION [None]
  - CARDIAC FAILURE [None]
  - DIABETES MELLITUS INADEQUATE CONTROL [None]
  - EXPIRED DRUG ADMINISTERED [None]
  - RENAL FAILURE [None]
  - BLOOD GLUCOSE INCREASED [None]
  - ASTHENIA [None]
  - ERYTHEMA [None]
